FAERS Safety Report 18271982 (Version 1)
Quarter: 2020Q3

REPORT INFORMATION
  Report Type: Spontaneous
  Country: US (occurrence: US)
  Receive Date: 20200916
  Receipt Date: 20200916
  Transmission Date: 20201103
  Serious: Yes (Death, Other)
  Sender: FDA-Public Use
  Company Number: US-PFIZER INC-2020356533

PATIENT
  Age: 23 Year
  Sex: Male

DRUGS (5)
  1. MEPERIDINE HCL [Suspect]
     Active Substance: MEPERIDINE HYDROCHLORIDE
     Indication: ABDOMINAL PAIN
     Dosage: 75 MG
  2. NITROGLYCERINE [Concomitant]
     Active Substance: NITROGLYCERIN
     Indication: HYPOAESTHESIA
  3. HYDROXYZINE [Concomitant]
     Active Substance: HYDROXYZINE HYDROCHLORIDE
     Indication: ABDOMINAL PAIN
     Dosage: 50 MG
     Route: 030
  4. NITROGLYCERINE [Concomitant]
     Active Substance: NITROGLYCERIN
     Indication: CHEST PAIN
     Route: 060
  5. NITROGLYCERINE [Concomitant]
     Active Substance: NITROGLYCERIN
     Indication: PAIN IN EXTREMITY

REACTIONS (3)
  - Hypertension [Unknown]
  - Seizure [Fatal]
  - Cardiac arrest [Fatal]
